FAERS Safety Report 15775385 (Version 1)
Quarter: 2018Q4

REPORT INFORMATION
  Report Type: Spontaneous
  Country: US (occurrence: US)
  Receive Date: 20181231
  Receipt Date: 20181231
  Transmission Date: 20190205
  Serious: No
  Sender: FDA-Public Use
  Company Number: PHEH2018US054173

PATIENT
  Sex: Female

DRUGS (1)
  1. COLESTYRAMINE [Suspect]
     Active Substance: CHOLESTYRAMINE
     Indication: PRODUCT USED FOR UNKNOWN INDICATION
     Dosage: 3 DF, QD
     Route: 065

REACTIONS (3)
  - Product taste abnormal [Unknown]
  - Product quality issue [Unknown]
  - Gastric disorder [Recovering/Resolving]
